FAERS Safety Report 4787221-3 (Version None)
Quarter: 2005Q4

REPORT INFORMATION
  Report Type: 
  Country: None (occurrence: None)
  Receive Date: 20051004
  Receipt Date: 20050923
  Transmission Date: 20060501
  Serious: Yes (Hospitalization)
  Sender: FDA-Public Use
  Company Number: JP-ROCHE-418645

PATIENT
  Age: 69 Year
  Sex: Male

DRUGS (7)
  1. PANALDINE [Suspect]
     Indication: THROMBOSIS PROPHYLAXIS
     Route: 048
     Dates: start: 20050506, end: 20050603
  2. BUFFERIN [Concomitant]
     Route: 048
     Dates: start: 20050506
  3. ACINON [Concomitant]
     Route: 048
     Dates: start: 20050506
  4. SIGMART [Concomitant]
     Route: 048
     Dates: start: 20050507
  5. DIOVAN [Concomitant]
     Dosage: INCREASED TO 80MG ON 13 MAY 2005.
     Route: 048
     Dates: start: 20050510
  6. ALLELOCK [Concomitant]
     Route: 048
     Dates: start: 20050529, end: 20050605
  7. ATARAX [Concomitant]
     Route: 048
     Dates: start: 20050529

REACTIONS (7)
  - AUTOIMMUNE DISORDER [None]
  - CHEST PAIN [None]
  - HEPATIC FUNCTION ABNORMAL [None]
  - HEPATITIS ACUTE [None]
  - HEPATITIS CHOLESTATIC [None]
  - JAUNDICE CHOLESTATIC [None]
  - NEOPLASM MALIGNANT [None]
